FAERS Safety Report 7052403-7 (Version None)
Quarter: 2010Q4

REPORT INFORMATION
  Report Type: 
  Country: None (occurrence: None)
  Receive Date: 20101014
  Receipt Date: 20101008
  Transmission Date: 20110411
  Serious: Yes (Death, Hospitalization, Other)
  Sender: FDA-Public Use
  Company Number: 2010US003705

PATIENT
  Age: 58 Year
  Sex: Male
  Weight: 71 kg

DRUGS (7)
  1. PROGRAF [Suspect]
     Indication: RENAL TRANSPLANT
     Dosage: 1 MG MORNING, 2 MG EVENING, ORAL
     Route: 048
     Dates: start: 20030515, end: 20100905
  2. VITAMIN E [Concomitant]
  3. CRANBERRY (VACCINIUM MACROCARPON) [Concomitant]
  4. PREDNISONE [Concomitant]
  5. SIMVASTATIN [Concomitant]
  6. RAPAMUNE [Concomitant]
  7. WARFARIN SODIUM [Concomitant]

REACTIONS (17)
  - ASTHENIA [None]
  - ATRIAL FIBRILLATION [None]
  - BENIGN PROSTATIC HYPERPLASIA [None]
  - CONDITION AGGRAVATED [None]
  - DIABETES MELLITUS [None]
  - DIVERTICULUM INTESTINAL [None]
  - IRON DEFICIENCY ANAEMIA [None]
  - KLEBSIELLA SEPSIS [None]
  - LOWER LIMB FRACTURE [None]
  - NEPHROLITHIASIS [None]
  - OSTEOPOROSIS [None]
  - OSTEOPOROTIC FRACTURE [None]
  - PALPITATIONS [None]
  - RENAL FAILURE ACUTE [None]
  - TENSION HEADACHE [None]
  - TRANSPLANT FAILURE [None]
  - UROSEPSIS [None]
